FAERS Safety Report 5157445-4 (Version None)
Quarter: 2006Q4

REPORT INFORMATION
  Report Type: 
  Country: None (occurrence: None)
  Receive Date: 20061127
  Receipt Date: 20061026
  Transmission Date: 20070319
  Serious: Yes (Hospitalization, Other)
  Sender: FDA-Public Use
  Company Number: US-ELI_LILLY_AND_COMPANY-US200610005508

PATIENT
  Age: 53 Year
  Sex: Female
  Weight: 112 kg

DRUGS (6)
  1. CALCIUM CARBONATE [Concomitant]
  2. DELTALIN [Concomitant]
  3. EVISTA [Suspect]
     Indication: OSTEOPOROSIS
     Dosage: 60 MG, UNK
     Route: 048
     Dates: start: 20060925, end: 20061024
  4. ATIVAN [Concomitant]
     Dosage: UNK UNK, AS NEEDED
     Route: 065
  5. ASTELIN [Concomitant]
     Dosage: UNK, UNKNOWN
     Route: 065
  6. KETEK [Concomitant]
     Dosage: UNK, UNKNOWN
     Route: 065

REACTIONS (4)
  - ABDOMINAL PAIN [None]
  - FACTOR V LEIDEN MUTATION [None]
  - PROTEIN TOTAL DECREASED [None]
  - PULMONARY EMBOLISM [None]
